FAERS Safety Report 7456116-9 (Version None)
Quarter: 2011Q2

REPORT INFORMATION
  Report Type: 
  Country: None (occurrence: None)
  Receive Date: 20110503
  Receipt Date: 20110415
  Transmission Date: 20111010
  Serious: No
  Sender: FDA-Public Use
  Company Number: US-B.I. PHARMACEUTICALS,INC./RIDGEFIELD-2011-BP-03929BP

PATIENT
  Sex: Male

DRUGS (7)
  1. FLOMAX [Suspect]
     Indication: PROSTATOMEGALY
     Dosage: 0.4 MG
     Route: 048
     Dates: start: 19960101
  2. SPIRONOLACTONE [Concomitant]
     Indication: HYPERTENSION
  3. WARFARIN [Concomitant]
  4. ESTAZOLAM [Concomitant]
  5. LASIX [Concomitant]
  6. HYZAAR [Concomitant]
     Indication: HYPERTENSION
  7. HYTRIN [Concomitant]
     Indication: PROSTATOMEGALY

REACTIONS (5)
  - DYSURIA [None]
  - NOCTURIA [None]
  - URINARY INCONTINENCE [None]
  - ATRIAL FIBRILLATION [None]
  - DRUG INEFFECTIVE [None]
